FAERS Safety Report 15624579 (Version 11)
Quarter: 2020Q4

REPORT INFORMATION
  Report Type: Report from Study
  Country: TW (occurrence: TW)
  Receive Date: 20181116
  Receipt Date: 20201109
  Transmission Date: 20210113
  Serious: Yes (Death, Hospitalization, Other)
  Sender: FDA-Public Use
  Company Number: TW-INCYTE CORPORATION-2018IN011273

PATIENT

DRUGS (33)
  1. JAKAVI [Suspect]
     Active Substance: RUXOLITINIB
     Dosage: 20 MG, UNK
     Route: 048
     Dates: start: 20181115, end: 20190221
  2. DIPHENHYDRAMINE HCL [Concomitant]
     Active Substance: DIPHENHYDRAMINE HYDROCHLORIDE
     Indication: PROPHYLAXIS
     Dosage: 30 MG
     Route: 042
     Dates: start: 20181102, end: 20181102
  3. FOLIC ACID. [Concomitant]
     Active Substance: FOLIC ACID
     Indication: THALASSAEMIA
     Dosage: 5 MG
     Route: 048
     Dates: start: 20180719
  4. NIFEDIPINE. [Concomitant]
     Active Substance: NIFEDIPINE
     Indication: HYPERTENSION
     Dosage: 10 MG
     Route: 048
     Dates: start: 20180927, end: 20180927
  5. CIMETIDINE [Concomitant]
     Active Substance: CIMETIDINE
     Indication: PROPHYLAXIS
     Dosage: 200 MG
     Route: 048
     Dates: start: 20180705, end: 20180905
  6. INFLUENZA VACCINE [Concomitant]
     Active Substance: INFLUENZA VIRUS VACCINE
     Indication: ANTIVIRAL PROPHYLAXIS
     Dosage: 0.5 ML
     Route: 030
     Dates: start: 20181018, end: 20181018
  7. HYDROCORTISONE. [Concomitant]
     Active Substance: HYDROCORTISONE
     Indication: PROPHYLAXIS
     Dosage: 100 MG
     Route: 042
     Dates: start: 20180823, end: 20180823
  8. HYDROCORTISONE. [Concomitant]
     Active Substance: HYDROCORTISONE
     Dosage: 100 MG
     Route: 042
     Dates: start: 20181102, end: 20181102
  9. HYDROCORTISONE. [Concomitant]
     Active Substance: HYDROCORTISONE
     Dosage: 100 MG
     Route: 042
     Dates: start: 20181115, end: 20181115
  10. HYDROCORTISONE. [Concomitant]
     Active Substance: HYDROCORTISONE
     Dosage: 100 MG
     Route: 042
     Dates: start: 20181129, end: 20181129
  11. JAKAVI [Suspect]
     Active Substance: RUXOLITINIB
     Dosage: 10 MG, UNK
     Route: 048
     Dates: start: 20190412, end: 20190720
  12. TRAMADOL. [Concomitant]
     Active Substance: TRAMADOL
     Indication: BACK PAIN
     Dosage: 50 MG
     Route: 048
     Dates: start: 20180705, end: 20180822
  13. DIPHENHYDRAMINE. [Concomitant]
     Active Substance: DIPHENHYDRAMINE
     Dosage: 30 MG
     Route: 042
     Dates: start: 20180906, end: 20180906
  14. JAKAVI [Suspect]
     Active Substance: RUXOLITINIB
     Dosage: 5 MG, BID
     Route: 048
     Dates: start: 20190621, end: 20190721
  15. LINAGLIPTIN [Concomitant]
     Active Substance: LINAGLIPTIN
     Indication: DIABETES MELLITUS
     Dosage: 5 MG
     Route: 048
     Dates: start: 20181025, end: 20181107
  16. HYDROCORTISONE. [Concomitant]
     Active Substance: HYDROCORTISONE
     Dosage: 100 MG
     Route: 042
     Dates: start: 20180906, end: 20180906
  17. HYDROCORTISONE. [Concomitant]
     Active Substance: HYDROCORTISONE
     Dosage: 100 MG
     Route: 042
     Dates: start: 20180927, end: 20180927
  18. TRAMADOL. [Concomitant]
     Active Substance: TRAMADOL
     Dosage: 50 MG
     Route: 048
     Dates: start: 20180823, end: 20190731
  19. HYDROCORTISONE. [Concomitant]
     Active Substance: HYDROCORTISONE
     Dosage: 100 MG
     Route: 042
     Dates: start: 20181213, end: 20181213
  20. PREDNISOLONE. [Concomitant]
     Active Substance: PREDNISOLONE
     Indication: PROPHYLAXIS
     Dosage: 10 MG
     Route: 048
     Dates: start: 20190221, end: 20190307
  21. NOVOMIX [Concomitant]
     Active Substance: INSULIN ASPART
     Indication: DIABETES MELLITUS
     Dosage: 11 U
     Route: 058
     Dates: start: 20181026, end: 20181108
  22. DIPHENHYDRAMINE. [Concomitant]
     Active Substance: DIPHENHYDRAMINE
     Indication: PROPHYLAXIS
     Dosage: 30 MG
     Route: 042
     Dates: start: 20180823, end: 20180823
  23. HYDROCORTISONE. [Concomitant]
     Active Substance: HYDROCORTISONE
     Dosage: 100 MG
     Route: 042
     Dates: start: 20181227, end: 20181227
  24. HYDROCORTISONE. [Concomitant]
     Active Substance: HYDROCORTISONE
     Dosage: 100 MG
     Route: 042
     Dates: start: 20190124, end: 20190124
  25. DIPHENHYDRAMINE. [Concomitant]
     Active Substance: DIPHENHYDRAMINE
     Dosage: 30 MG
     Route: 042
     Dates: start: 20180927, end: 20180927
  26. JAKAVI [Suspect]
     Active Substance: RUXOLITINIB
     Indication: MYELOFIBROSIS
     Dosage: 10 MG, BID
     Route: 048
     Dates: start: 20180823, end: 20181108
  27. JAKAVI [Suspect]
     Active Substance: RUXOLITINIB
     Dosage: 20 MG, UNK
     Route: 048
     Dates: start: 20190307, end: 20190411
  28. HYDROCORTISONE. [Concomitant]
     Active Substance: HYDROCORTISONE
     Dosage: 100 MG
     Route: 042
     Dates: start: 20190131, end: 20190131
  29. NOVOMIX [Concomitant]
     Active Substance: INSULIN ASPART
     Dosage: 16 U
     Route: 058
     Dates: start: 20181026, end: 20181108
  30. SENNOSIDE [SENNOSIDE A+B] [Concomitant]
     Active Substance: SENNOSIDES A AND B
     Indication: CONSTIPATION PROPHYLAXIS
     Dosage: 12 MG
     Route: 048
     Dates: start: 20180927
  31. CIMETIDINE [Concomitant]
     Active Substance: CIMETIDINE
     Dosage: 200 MG
     Route: 048
     Dates: start: 20180906, end: 20181108
  32. DIPHENHYDRAMINE. [Concomitant]
     Active Substance: DIPHENHYDRAMINE
     Dosage: 30 MG
     Route: 042
     Dates: start: 20181115, end: 20181115
  33. DIPHENHYDRAMIN HYDROCHLORIDE [Concomitant]
     Active Substance: DIPHENHYDRAMINE HYDROCHLORIDE
     Indication: PROPHYLAXIS
     Dosage: 30 MG
     Route: 042
     Dates: start: 20181102, end: 20181102

REACTIONS (57)
  - Haemolytic anaemia [Unknown]
  - Dry skin [Not Recovered/Not Resolved]
  - Dysuria [Not Recovered/Not Resolved]
  - Pneumonia [Recovered/Resolved]
  - Carbuncle [Not Recovered/Not Resolved]
  - Malaise [Recovered/Resolved]
  - Hyperuricaemia [Unknown]
  - Respiratory failure [Unknown]
  - Chest discomfort [Recovered/Resolved]
  - Flank pain [Recovering/Resolving]
  - Leukopenia [Fatal]
  - Vascular calcification [Unknown]
  - Neutropenia [Fatal]
  - Oropharyngeal pain [Recovered/Resolved]
  - Arthralgia [Recovered/Resolved]
  - Urinary tract infection [Recovered/Resolved]
  - Chronic kidney disease [Recovered/Resolved]
  - Bronchitis [Not Recovered/Not Resolved]
  - C-reactive protein increased [Unknown]
  - Cough [Recovered/Resolved]
  - Productive cough [Not Recovered/Not Resolved]
  - Pain in extremity [Unknown]
  - Wound complication [Recovered/Resolved]
  - Spleen disorder [Unknown]
  - Thalassaemia [Unknown]
  - Lung infiltration [Unknown]
  - Leukopenia [Recovered/Resolved]
  - Oedema [Unknown]
  - Mycobacterium test positive [Unknown]
  - Thrombocytopenia [Fatal]
  - Chills [Unknown]
  - Cardiac failure congestive [Unknown]
  - Urine output decreased [Unknown]
  - Osteoarthritis [Unknown]
  - Hypertension [Unknown]
  - Osteosclerosis [Unknown]
  - Lung infiltration [Recovered/Resolved]
  - Atelectasis [Unknown]
  - Joint range of motion decreased [Not Recovered/Not Resolved]
  - Cardiomegaly [Unknown]
  - Lung consolidation [Unknown]
  - Pyrexia [Recovered/Resolved]
  - Haemochromatosis [Unknown]
  - Hepatosplenomegaly [Not Recovered/Not Resolved]
  - Asthenia [Not Recovered/Not Resolved]
  - Wound abscess [Not Recovered/Not Resolved]
  - Acute kidney injury [Recovered/Resolved]
  - Blood creatinine increased [Recovered/Resolved]
  - Cough [Recovered/Resolved]
  - Pruritus [Not Recovered/Not Resolved]
  - Pyrexia [Recovered/Resolved]
  - Haemoglobin decreased [Recovering/Resolving]
  - Histoplasmosis [Recovering/Resolving]
  - Carbuncle [Recovered/Resolved]
  - Platelet count decreased [Recovered/Resolved]
  - Pneumonia fungal [Fatal]
  - White blood cell count decreased [Not Recovered/Not Resolved]

NARRATIVE: CASE EVENT DATE: 20180918
